FAERS Safety Report 8010361-2 (Version None)
Quarter: 2011Q4

REPORT INFORMATION
  Report Type: 
  Country: None (occurrence: None)
  Receive Date: 20111228
  Receipt Date: 20111220
  Transmission Date: 20120403
  Serious: Yes (Other)
  Sender: FDA-Public Use
  Company Number: US-ASTELLAS-2011US008625

PATIENT

DRUGS (4)
  1. TRAMADOL HCL [Concomitant]
     Indication: PAIN
     Dosage: 6 MG, UID/QD
     Route: 048
  2. PROGRAF [Suspect]
     Indication: LIVER TRANSPLANT
     Dosage: 3 MG, UID/QD
     Route: 048
     Dates: start: 19970505
  3. LISINOPRIL [Concomitant]
     Indication: BLOOD PRESSURE
     Dosage: 5 MG, UID/QD
     Route: 048
     Dates: start: 19970505
  4. METOPROLOL SUCCINATE [Concomitant]
     Indication: BLOOD PRESSURE
     Dosage: 1 MG, UID/QD
     Route: 048
     Dates: start: 19970505

REACTIONS (3)
  - BENIGN BREAST NEOPLASM [None]
  - CARDIAC OPERATION [None]
  - BLINDNESS [None]
